FAERS Safety Report 9452198 (Version 2)
Quarter: 2013Q3

REPORT INFORMATION
  Report Type: Spontaneous
  Country: US (occurrence: US)
  Receive Date: 20130812
  Receipt Date: 20130905
  Transmission Date: 20140515
  Serious: No
  Sender: FDA-Public Use
  Company Number: US-009507513-1308USA001520

PATIENT
  Sex: 0

DRUGS (1)
  1. NASONEX [Suspect]

REACTIONS (2)
  - Drug dose omission [Unknown]
  - Product quality issue [Unknown]
